FAERS Safety Report 24612917 (Version 1)
Quarter: 2024Q4

REPORT INFORMATION
  Report Type: Spontaneous
  Country: US (occurrence: None)
  Receive Date: 20241112
  Receipt Date: 20241112
  Transmission Date: 20250114
  Serious: Yes (unspecified)
  Sender: Public
  Company Number: None

PATIENT
  Age: 41 Year
  Sex: Female

DRUGS (1)
  1. SOMAVERT [Suspect]
     Active Substance: PEGVISOMANT
     Indication: Acromegaly
     Dosage: 10MG 3 TIMES WEEKLY SUBCUTANEOUS
     Route: 058

REACTIONS (1)
  - Adrenocortical insufficiency acute [None]
